FAERS Safety Report 6774814-7 (Version None)
Quarter: 2010Q2

REPORT INFORMATION
  Report Type: 
  Country: None (occurrence: None)
  Receive Date: 20100617
  Receipt Date: 20100610
  Transmission Date: 20101027
  Serious: Yes (Death)
  Sender: FDA-Public Use
  Company Number: JP-ROCHE-709416

PATIENT
  Sex: Male

DRUGS (26)
  1. TOCILIZUMAB [Suspect]
     Indication: RHEUMATOID ARTHRITIS
     Route: 041
     Dates: start: 20080604, end: 20080604
  2. TOCILIZUMAB [Suspect]
     Dosage: FROM: INJECTION.
     Route: 041
     Dates: start: 20080707, end: 20080707
  3. TOCILIZUMAB [Suspect]
     Route: 041
     Dates: start: 20080804, end: 20080804
  4. TOCILIZUMAB [Suspect]
     Route: 041
     Dates: start: 20080905, end: 20080905
  5. TOCILIZUMAB [Suspect]
     Route: 041
     Dates: start: 20081003, end: 20081003
  6. TOCILIZUMAB [Suspect]
     Route: 041
     Dates: start: 20081031, end: 20081031
  7. TOCILIZUMAB [Suspect]
     Route: 041
     Dates: start: 20081128, end: 20081128
  8. TOCILIZUMAB [Suspect]
     Route: 041
     Dates: start: 20081226, end: 20081226
  9. TOCILIZUMAB [Suspect]
     Route: 041
     Dates: start: 20090123, end: 20090123
  10. TOCILIZUMAB [Suspect]
     Route: 041
     Dates: start: 20090220, end: 20090220
  11. TOCILIZUMAB [Suspect]
     Route: 041
     Dates: start: 20090327, end: 20090327
  12. TOCILIZUMAB [Suspect]
     Route: 041
     Dates: start: 20090424, end: 20090424
  13. TOCILIZUMAB [Suspect]
     Route: 041
     Dates: start: 20090522, end: 20090522
  14. TOCILIZUMAB [Suspect]
     Route: 041
     Dates: start: 20090619, end: 20090619
  15. TOCILIZUMAB [Suspect]
     Route: 041
     Dates: start: 20090724, end: 20090724
  16. TOCILIZUMAB [Suspect]
     Route: 041
     Dates: start: 20090830, end: 20090830
  17. TOCILIZUMAB [Suspect]
     Route: 041
     Dates: start: 20100409, end: 20100409
  18. METOLATE [Concomitant]
     Dosage: NOTE: DIVIDED INTO 3 DOSES
     Route: 048
  19. PREDNISOLONE [Concomitant]
     Route: 048
     Dates: end: 20090122
  20. PREDNISOLONE [Concomitant]
     Route: 048
     Dates: start: 20090123
  21. ISCOTIN [Concomitant]
     Route: 048
  22. CYANOCOBALAMIN [Concomitant]
     Dosage: DOSE FORM: PERORAL AGENT
     Route: 048
  23. VOLTAREN [Concomitant]
     Dosage: DOSE FORM: SUSTAINED RELEASE CAPSULE
     Route: 048
  24. ALLELOCK [Concomitant]
     Route: 048
  25. PARIET [Concomitant]
     Route: 048
  26. FERROMIA [Concomitant]
     Route: 048

REACTIONS (1)
  - INTERSTITIAL LUNG DISEASE [None]
